FAERS Safety Report 17939296 (Version 2)
Quarter: 2020Q3

REPORT INFORMATION
  Report Type: Report from Study
  Country: US (occurrence: US)
  Receive Date: 20200624
  Receipt Date: 20200702
  Transmission Date: 20201103
  Serious: Yes (Hospitalization)
  Sender: FDA-Public Use
  Company Number: US-009507513-1907USA004842

PATIENT
  Age: 77 Year
  Sex: Male

DRUGS (22)
  1. GABAPENTIN. [Concomitant]
     Active Substance: GABAPENTIN
     Indication: HYPOAESTHESIA
     Dosage: 300 MILLIGRAM, IN THE AM AND PM
     Route: 048
  2. GABAPENTIN. [Concomitant]
     Active Substance: GABAPENTIN
     Indication: SLEEP DISORDER THERAPY
  3. ONDANSETRON [Concomitant]
     Active Substance: ONDANSETRON
     Indication: NAUSEA
     Dosage: 8 MILLIGRAM, TWICE DAILY
     Route: 048
  4. TYLENOL [Concomitant]
     Active Substance: ACETAMINOPHEN
     Dosage: UNK
  5. ASPERCREME NOS [Concomitant]
     Active Substance: MENTHOL\TROLAMINE SALICYLATE
     Indication: PAIN
     Dosage: UNK
  6. NEURONTIN [Concomitant]
     Active Substance: GABAPENTIN
     Dosage: 1 CAPSULE, BID
  7. DECADRON [Concomitant]
     Active Substance: DEXAMETHASONE
     Dosage: 4 MILLIGRAM, TWICE DAILY
     Route: 048
     Dates: start: 2019, end: 20190708
  8. VALIUM [Concomitant]
     Active Substance: DIAZEPAM
     Indication: MUSCLE RELAXANT THERAPY
     Dosage: 2 MILLIGRAM, UNK
  9. ALIMTA [Suspect]
     Active Substance: PEMETREXED DISODIUM
     Indication: NON-SMALL CELL LUNG CANCER
     Dosage: UNK
     Route: 042
     Dates: start: 20190708, end: 201909
  10. PREDNISONE. [Suspect]
     Active Substance: PREDNISONE
     Dosage: 30 MILLIGRAM
     Route: 048
  11. CRESTOR [Concomitant]
     Active Substance: ROSUVASTATIN CALCIUM
     Dosage: 5 MILLIGRAM
  12. PEMBROLIZUMAB. [Suspect]
     Active Substance: PEMBROLIZUMAB
     Indication: NON-SMALL CELL LUNG CANCER
     Dosage: 200 MILLIGRAM, Q3W (STRENGTH: 100 MG, ROUTE OF ADMINISTRATION: PORT
     Route: 042
     Dates: start: 20190708
  13. LISINOPRIL AND HYDROCHLOROTHIAZIDE [Concomitant]
     Active Substance: HYDROCHLOROTHIAZIDE\LISINOPRIL
     Indication: BLOOD PRESSURE ABNORMAL
     Dosage: 10/12.5 MG, DAILY
     Route: 048
  14. PEMBROLIZUMAB. [Suspect]
     Active Substance: PEMBROLIZUMAB
     Indication: METASTASES TO LUNG
  15. CARBOPLATIN. [Suspect]
     Active Substance: CARBOPLATIN
     Indication: NON-SMALL CELL LUNG CANCER
     Dosage: UNK
     Route: 042
     Dates: start: 20190708, end: 201909
  16. LIPITOR [Concomitant]
     Active Substance: ATORVASTATIN CALCIUM
     Indication: BLOOD CHOLESTEROL ABNORMAL
     Dosage: 20 MILLIGRAM, DAILY
     Route: 048
  17. PREDNISONE. [Suspect]
     Active Substance: PREDNISONE
     Dosage: UNK
  18. FOLIC ACID. [Concomitant]
     Active Substance: FOLIC ACID
     Indication: ROUTINE HEALTH MAINTENANCE
     Dosage: 1 MILLIGRAM, DAILY
     Route: 048
  19. ZYPREXA [Concomitant]
     Active Substance: OLANZAPINE
     Indication: SLEEP DISORDER
     Dosage: 2.5 MILLIGRAM, EVERY NIGHT
     Route: 048
     Dates: start: 2019
  20. ZYPREXA [Concomitant]
     Active Substance: OLANZAPINE
     Dosage: 5 MG, AT NIGHT
     Route: 048
     Dates: start: 2019
  21. CELEBREX [Concomitant]
     Active Substance: CELECOXIB
     Dosage: UNK
     Route: 048
     Dates: end: 20190709
  22. OLANZAPINE. [Concomitant]
     Active Substance: OLANZAPINE
     Dosage: UNK

REACTIONS (33)
  - Colitis [Unknown]
  - Euphoric mood [Unknown]
  - Tendon discomfort [Unknown]
  - Fatigue [Not Recovered/Not Resolved]
  - Euphoric mood [Unknown]
  - Taste disorder [Unknown]
  - Pruritus [Recovered/Resolved]
  - Rash [Recovered/Resolved]
  - White blood cell count decreased [Recovered/Resolved]
  - Trichoglossia [Unknown]
  - Gastric disorder [Unknown]
  - Ageusia [Unknown]
  - Feeling abnormal [Unknown]
  - Muscle strain [Recovered/Resolved]
  - Hepatic enzyme increased [Recovered/Resolved]
  - Eructation [Unknown]
  - Rash pruritic [Recovered/Resolved]
  - Dysphonia [Not Recovered/Not Resolved]
  - Oral candidiasis [Recovered/Resolved]
  - Dysgeusia [Unknown]
  - Haemorrhoidal haemorrhage [Recovering/Resolving]
  - Feeling jittery [Recovered/Resolved]
  - Product dose omission issue [Unknown]
  - Colitis [Recovering/Resolving]
  - Feeling drunk [Unknown]
  - Peripheral swelling [Not Recovered/Not Resolved]
  - Back pain [Recovered/Resolved]
  - Prostatic specific antigen decreased [Not Recovered/Not Resolved]
  - Heart rate decreased [Unknown]
  - Eructation [Unknown]
  - Tongue discomfort [Unknown]
  - Insomnia [Unknown]
  - Abdominal discomfort [Unknown]

NARRATIVE: CASE EVENT DATE: 2019
